FAERS Safety Report 16875126 (Version 1)
Quarter: 2019Q4

REPORT INFORMATION
  Report Type: Spontaneous
  Country: US (occurrence: US)
  Receive Date: 20191001
  Receipt Date: 20191001
  Transmission Date: 20200122
  Serious: Yes (Hospitalization)
  Sender: FDA-Public Use
  Company Number: US-SEATTLE GENETICS-2019SGN00537

PATIENT
  Sex: Female

DRUGS (12)
  1. ADCETRIS [Suspect]
     Active Substance: BRENTUXIMAB VEDOTIN
     Dosage: 120 MG, UNK
     Route: 042
     Dates: start: 20190207
  2. DACARBAZINE. [Suspect]
     Active Substance: DACARBAZINE
     Indication: HODGKIN^S DISEASE
     Dosage: 120 MG, UNK
     Route: 042
     Dates: start: 20190121
  3. DACARBAZINE. [Suspect]
     Active Substance: DACARBAZINE
     Dosage: 120 MG, UNK
     Route: 042
     Dates: start: 20190221
  4. DOXORUBICIN [Suspect]
     Active Substance: DOXORUBICIN
     Indication: HODGKIN^S DISEASE
     Dosage: 120 MG, UNK
     Route: 042
     Dates: start: 20190121
  5. DOXORUBICIN [Suspect]
     Active Substance: DOXORUBICIN
     Dosage: 120 MG, UNK
     Route: 042
     Dates: start: 20190207
  6. VINBLASTINE [Suspect]
     Active Substance: VINBLASTINE
     Dosage: 120 MG, UNK
     Route: 042
     Dates: start: 20190221
  7. ADCETRIS [Suspect]
     Active Substance: BRENTUXIMAB VEDOTIN
     Dosage: 120 MG, UNK
     Route: 042
     Dates: start: 20190221
  8. DOXORUBICIN [Suspect]
     Active Substance: DOXORUBICIN
     Dosage: 120 MG, UNK
     Route: 042
     Dates: start: 20190221
  9. VINBLASTINE [Suspect]
     Active Substance: VINBLASTINE
     Indication: HODGKIN^S DISEASE
     Dosage: 120 MG, UNK
     Route: 042
     Dates: start: 20190121
  10. VINBLASTINE [Suspect]
     Active Substance: VINBLASTINE
     Dosage: 120 MG, UNK
     Route: 042
     Dates: start: 20190207
  11. ADCETRIS [Suspect]
     Active Substance: BRENTUXIMAB VEDOTIN
     Indication: HODGKIN^S DISEASE
     Dosage: 120 MG, UNK
     Route: 042
     Dates: start: 20190121
  12. DACARBAZINE. [Suspect]
     Active Substance: DACARBAZINE
     Dosage: 120 MG, UNK
     Route: 042
     Dates: start: 20190207

REACTIONS (2)
  - Constipation [Recovered/Resolved]
  - Constipation [Recovered/Resolved]

NARRATIVE: CASE EVENT DATE: 20190211
